FAERS Safety Report 4766537-0 (Version None)
Quarter: 2005Q3

REPORT INFORMATION
  Report Type: 
  Country: None (occurrence: None)
  Receive Date: 20050909
  Receipt Date: 20050828
  Transmission Date: 20060218
  Serious: No
  Sender: FDA-Public Use
  Company Number: 2005120763

PATIENT
  Age: 20 Year
  Sex: Male

DRUGS (4)
  1. CELEBREX [Suspect]
     Indication: ACUTE TONSILLITIS
     Dosage: 400 MG (200 MG, 2 IN 1 D), ORAL
     Route: 048
     Dates: start: 20050819, end: 20050824
  2. CLINDAMYCIN HYDROCHLORIDE [Suspect]
     Indication: ACUTE TONSILLITIS
     Dosage: 900 MG (300 MG, 3 IN 1 D), ORAL
     Route: 048
     Dates: start: 20050819, end: 20050827
  3. ISODINE (POVIDINE-IODINE0 [Concomitant]
  4. ACETAMINOPHEN [Concomitant]

REACTIONS (7)
  - EYELID OEDEMA [None]
  - HYPOAESTHESIA [None]
  - PRURITUS GENERALISED [None]
  - RASH ERYTHEMATOUS [None]
  - RASH GENERALISED [None]
  - RASH MACULO-PAPULAR [None]
  - SWELLING FACE [None]
